FAERS Safety Report 23112059 (Version 3)
Quarter: 2023Q4

REPORT INFORMATION
  Report Type: Spontaneous
  Country: JP (occurrence: JP)
  Receive Date: 20231026
  Receipt Date: 20231201
  Transmission Date: 20240109
  Serious: Yes (Death, Hospitalization, Other)
  Sender: FDA-Public Use
  Company Number: JP-MSD-2201JPN003639J

PATIENT
  Age: 63 Year
  Sex: Female

DRUGS (4)
  1. KEYTRUDA [Suspect]
     Active Substance: PEMBROLIZUMAB
     Indication: Uterine cancer
     Dosage: 200 MILLIGRAM, ONCE
     Route: 041
     Dates: start: 20220112, end: 20220202
  2. LENVIMA [Suspect]
     Active Substance: LENVATINIB
     Indication: Uterine cancer
     Dosage: 14 MILLIGRAM, QD
     Route: 048
     Dates: start: 20220112, end: 20220119
  3. LENVIMA [Suspect]
     Active Substance: LENVATINIB
     Dosage: 10 MILLIGRAM, QD
     Route: 048
     Dates: start: 20220126, end: 2022
  4. LENVIMA [Suspect]
     Active Substance: LENVATINIB
     Dosage: UNK
     Route: 048
     Dates: start: 202202, end: 202202

REACTIONS (7)
  - Ileus [Fatal]
  - General physical health deterioration [Unknown]
  - Thyroid disorder [Unknown]
  - Platelet count decreased [Recovering/Resolving]
  - Protein urine [Unknown]
  - Malaise [Unknown]
  - Decreased appetite [Unknown]

NARRATIVE: CASE EVENT DATE: 20220101
